FAERS Safety Report 18696961 (Version 1)
Quarter: 2021Q1

REPORT INFORMATION
  Report Type: Spontaneous
  Country: US (occurrence: US)
  Receive Date: 20210104
  Receipt Date: 20210104
  Transmission Date: 20210419
  Serious: Yes (Death, Hospitalization)
  Sender: FDA-Public Use
  Company Number: US-MYLANLABS-2020M1106634

PATIENT
  Age: 68 Year
  Sex: Male

DRUGS (1)
  1. PREDNISONE. [Suspect]
     Active Substance: PREDNISONE
     Indication: AUTOIMMUNE HAEMOLYTIC ANAEMIA
     Dosage: 1 MILLIGRAM/KILOGRAM
     Route: 065

REACTIONS (5)
  - Haemoperitoneum [Fatal]
  - Shock haemorrhagic [Fatal]
  - Ventricular tachycardia [Fatal]
  - Gastrointestinal perforation [Fatal]
  - Gastrointestinal haemorrhage [Fatal]
